FAERS Safety Report 19439546 (Version 1)
Quarter: 2021Q2

REPORT INFORMATION
  Report Type: Spontaneous
  Country: AU (occurrence: AU)
  Receive Date: 20210618
  Receipt Date: 20210618
  Transmission Date: 20210717
  Serious: Yes (Life-Threatening, Hospitalization, Other)
  Sender: FDA-Public Use
  Company Number: AU-LEADINGPHARMA-AU-2021LEALIT00198

PATIENT
  Age: 10 Month
  Sex: Male
  Weight: 10 kg

DRUGS (10)
  1. NIFEDIPINE. [Suspect]
     Active Substance: NIFEDIPINE
     Indication: PRODUCT USED FOR UNKNOWN INDICATION
     Route: 065
  2. CALCIUM CHLORIDE. [Interacting]
     Active Substance: CALCIUM CHLORIDE
     Indication: ACCIDENTAL OVERDOSE
     Dosage: 10% 2 ML  X  4
     Route: 042
  3. VASOPRESSIN. [Interacting]
     Active Substance: VASOPRESSIN
     Indication: HYPOTENSION
     Route: 065
  4. NORADRENALINE (NORPINEPHRINE) [Suspect]
     Active Substance: NOREPINEPHRINE
     Indication: HYPOTENSION
     Route: 065
  5. ADRENALINE [EPINEPHRINE] [Interacting]
     Active Substance: EPINEPHRINE
     Indication: HYPOTENSION
     Dosage: 100 MCG X 11 DOSES
     Route: 065
  6. ACTIVATED CHARCOAL. [Suspect]
     Active Substance: ACTIVATED CHARCOAL
     Route: 065
  7. INSULIN [Interacting]
     Active Substance: INSULIN NOS
     Indication: ACCIDENTAL OVERDOSE
     Dosage: 10 UNITS
     Route: 042
  8. INSULIN [Interacting]
     Active Substance: INSULIN NOS
     Route: 065
  9. METHYLENE BLUE. [Interacting]
     Active Substance: METHYLENE BLUE
     Indication: HYPOTENSION
     Route: 065
  10. SODIUM BICARBONATE;WATER PURIFIED;XYLITOL [Interacting]
     Active Substance: SODIUM BICARBONATE\XYLITOL
     Route: 065

REACTIONS (7)
  - Cardiogenic shock [Recovered/Resolved]
  - Product use issue [None]
  - Accidental overdose [Recovered/Resolved]
  - Toxicity to various agents [Unknown]
  - Acidosis [Recovered/Resolved]
  - Cardiac arrest [Recovered/Resolved]
  - Contraindicated product administered [None]
